FAERS Safety Report 5512611-0 (Version None)
Quarter: 2007Q4

REPORT INFORMATION
  Report Type: 
  Country: None (occurrence: None)
  Receive Date: 20071108
  Receipt Date: 20071108
  Transmission Date: 20080405
  Serious: Yes (Hospitalization)
  Sender: FDA-Public Use
  Company Number: None

PATIENT
  Age: 44 Year
  Sex: Male
  Weight: 110 kg

DRUGS (21)
  1. BEVACIZUMAB (GENENTECH) [Suspect]
     Indication: GLIOBLASTOMA MULTIFORME
     Dosage: 1230MG IV EVERY 2 WEEKS
     Route: 042
     Dates: start: 20070910
  2. BEVACIZUMAB (GENENTECH) [Suspect]
     Indication: GLIOBLASTOMA MULTIFORME
     Dosage: 1230MG IV EVERY 2 WEEKS
     Route: 042
     Dates: start: 20070924
  3. BEVACIZUMAB (GENENTECH) [Suspect]
     Indication: GLIOBLASTOMA MULTIFORME
     Dosage: 1230MG IV EVERY 2 WEEKS
     Route: 042
     Dates: start: 20071008
  4. BEVACIZUMAB (GENENTECH) [Suspect]
     Indication: GLIOBLASTOMA MULTIFORME
     Dosage: 1230MG IV EVERY 2 WEEKS
     Route: 042
     Dates: start: 20071030
  5. TEMOZOLOMIDE [Suspect]
     Indication: GLIOBLASTOMA MULTIFORME
     Dosage: 50 MG/M2 DAILY X28DAYS
     Dates: start: 20070910, end: 20071102
  6. HYDROCHLOROTHIAZIDE [Concomitant]
  7. NEXIUM [Concomitant]
  8. XANAX [Concomitant]
  9. FLEXERIL [Concomitant]
  10. DECADRON [Concomitant]
  11. DIFLUCAN [Concomitant]
  12. LEXAPRO [Concomitant]
  13. AMBIEN [Concomitant]
  14. VIOKATE [Concomitant]
  15. BACLOFEN [Concomitant]
  16. COLACE [Concomitant]
  17. LANTUS [Concomitant]
  18. PROTONIX [Concomitant]
  19. ACTIGALL [Concomitant]
  20. ZESTRIL [Concomitant]
  21. MIRALAX [Concomitant]

REACTIONS (5)
  - CHOLELITHIASIS [None]
  - DISEASE PROGRESSION [None]
  - HYPERGLYCAEMIA [None]
  - HYPERTENSION [None]
  - PANCREATITIS ACUTE [None]
